FAERS Safety Report 18565564 (Version 1)
Quarter: 2020Q4

REPORT INFORMATION
  Report Type: Spontaneous
  Country: US (occurrence: US)
  Receive Date: 20201201
  Receipt Date: 20201201
  Transmission Date: 20210114
  Serious: Yes (Other)
  Sender: FDA-Public Use
  Company Number: US-ASTRAZENECA-2020SF55030

PATIENT
  Sex: Female

DRUGS (51)
  1. DOXYCYCLINE. [Concomitant]
     Active Substance: DOXYCYCLINE
     Dates: start: 20110412
  2. MUCINEX [Concomitant]
     Active Substance: GUAIFENESIN
     Dates: start: 20100908
  3. LOVAZA [Concomitant]
     Active Substance: OMEGA-3-ACID ETHYL ESTERS
     Dates: start: 20120614
  4. HYDROXYZINE [Concomitant]
     Active Substance: HYDROXYZINE HYDROCHLORIDE
     Dates: start: 20130809
  5. POTASSIUM CHLORIDE. [Concomitant]
     Active Substance: POTASSIUM CHLORIDE
     Dates: start: 20140604
  6. PRILOSEC [Suspect]
     Active Substance: OMEPRAZOLE MAGNESIUM
     Indication: GASTROOESOPHAGEAL REFLUX DISEASE
     Dosage: GENERIC
     Route: 065
     Dates: start: 201404, end: 201407
  7. PRILOSEC [Suspect]
     Active Substance: OMEPRAZOLE MAGNESIUM
     Indication: GASTROOESOPHAGEAL REFLUX DISEASE
     Dosage: GENERIC
     Route: 065
     Dates: start: 20131230
  8. CLARITHROMYCIN. [Concomitant]
     Active Substance: CLARITHROMYCIN
     Dates: start: 20090430
  9. ERYTHROMYCIN. [Concomitant]
     Active Substance: ERYTHROMYCIN
     Dates: start: 20110523
  10. ZOLPIDEM [Concomitant]
     Active Substance: ZOLPIDEM TARTRATE
     Dates: start: 20110328
  11. CHLORHEXIDINE [Concomitant]
     Active Substance: CHLORHEXIDINE
     Dates: start: 20160813
  12. PRILOSEC [Suspect]
     Active Substance: OMEPRAZOLE MAGNESIUM
     Indication: GASTROOESOPHAGEAL REFLUX DISEASE
     Route: 048
     Dates: start: 2009, end: 2016
  13. RANITIDINE. [Concomitant]
     Active Substance: RANITIDINE
     Dates: start: 201511
  14. ACETAMINOPHEN. [Concomitant]
     Active Substance: ACETAMINOPHEN
     Dates: start: 20110503
  15. TRILIPIX [Concomitant]
     Active Substance: FENOFIBRIC ACID
     Dates: start: 20120614
  16. IBUPROFEN. [Concomitant]
     Active Substance: IBUPROFEN
     Dates: start: 20131011
  17. PRILOSEC [Suspect]
     Active Substance: OMEPRAZOLE MAGNESIUM
     Indication: GASTROOESOPHAGEAL REFLUX DISEASE
     Dosage: GENERIC
     Route: 065
     Dates: start: 20090406
  18. METRONIDAZOLE. [Concomitant]
     Active Substance: METRONIDAZOLE
     Indication: INFECTION
     Dates: end: 201602
  19. FISH OIL [Concomitant]
     Active Substance: FISH OIL
     Indication: NUTRITIONAL SUPPLEMENTATION
     Dates: end: 201512
  20. CEFADROXIL. [Concomitant]
     Active Substance: CEFADROXIL
     Dates: start: 20100722
  21. LORATADINE. [Concomitant]
     Active Substance: LORATADINE
     Dates: start: 20100420
  22. ONDANSETRON [Concomitant]
     Active Substance: ONDANSETRON
     Dates: start: 20120323
  23. LORAZEPAM. [Concomitant]
     Active Substance: LORAZEPAM
     Dates: start: 20150609
  24. NICOTINE. [Concomitant]
     Active Substance: NICOTINE
     Dates: start: 20150122
  25. GUAIFENESIN. [Concomitant]
     Active Substance: GUAIFENESIN
     Dates: start: 20150902
  26. HYDROCORTISONE. [Concomitant]
     Active Substance: HYDROCORTISONE
     Dates: start: 20110328
  27. DEXILANT [Suspect]
     Active Substance: DEXLANSOPRAZOLE
     Indication: GASTROOESOPHAGEAL REFLUX DISEASE
     Route: 065
     Dates: start: 201411, end: 201501
  28. CRESTOR [Concomitant]
     Active Substance: ROSUVASTATIN CALCIUM
     Indication: DYSLIPIDAEMIA
     Dates: end: 201512
  29. NYSTOP [Concomitant]
     Active Substance: NYSTATIN
     Dates: start: 20110412
  30. FLUCONAZOLE. [Concomitant]
     Active Substance: FLUCONAZOLE
     Dates: start: 20120420
  31. PRILOSEC [Suspect]
     Active Substance: OMEPRAZOLE MAGNESIUM
     Indication: GASTROOESOPHAGEAL REFLUX DISEASE
     Dosage: GENERIC
     Route: 065
     Dates: start: 201511, end: 201601
  32. PRILOSEC [Suspect]
     Active Substance: OMEPRAZOLE MAGNESIUM
     Indication: GASTROOESOPHAGEAL REFLUX DISEASE
     Dosage: GENERIC
     Route: 065
     Dates: start: 201312, end: 201401
  33. PRILOSEC [Suspect]
     Active Substance: OMEPRAZOLE MAGNESIUM
     Indication: GASTROOESOPHAGEAL REFLUX DISEASE
     Dosage: GENERIC
     Route: 065
     Dates: start: 201304, end: 201307
  34. PRILOSEC [Suspect]
     Active Substance: OMEPRAZOLE MAGNESIUM
     Indication: GASTROOESOPHAGEAL REFLUX DISEASE
     Dosage: GENERIC
     Route: 065
     Dates: start: 20140321
  35. PANTOPRAZOLE [Suspect]
     Active Substance: PANTOPRAZOLE
     Indication: GASTROOESOPHAGEAL REFLUX DISEASE
     Route: 065
     Dates: start: 201511, end: 201512
  36. AZITHROMYCIN ANHYDROUS. [Concomitant]
     Active Substance: AZITHROMYCIN ANHYDROUS
     Indication: INFECTION
     Dates: end: 201512
  37. VITAMIN D3 [Concomitant]
     Active Substance: CHOLECALCIFEROL
     Indication: NUTRITIONAL SUPPLEMENTATION
     Dates: end: 201512
  38. VENLAFAXINE [Concomitant]
     Active Substance: VENLAFAXINE HYDROCHLORIDE
     Dates: start: 20090511
  39. LEVAQUIN [Concomitant]
     Active Substance: LEVOFLOXACIN
     Dates: start: 20100929
  40. MIRTAZAPINE. [Concomitant]
     Active Substance: MIRTAZAPINE
     Dates: start: 20120621
  41. DELSYM [Concomitant]
     Active Substance: DEXTROMETHORPHAN
     Dates: start: 20150306
  42. DEXILANT [Suspect]
     Active Substance: DEXLANSOPRAZOLE
     Indication: GASTROOESOPHAGEAL REFLUX DISEASE
     Dosage: 30.0MG UNKNOWN
     Route: 065
     Dates: start: 20110622
  43. DEXILANT [Suspect]
     Active Substance: DEXLANSOPRAZOLE
     Indication: GASTROOESOPHAGEAL REFLUX DISEASE
     Dosage: 30.0MG UNKNOWN
     Route: 065
     Dates: start: 20141117
  44. PANTOPRAZOLE [Suspect]
     Active Substance: PANTOPRAZOLE
     Indication: GASTROOESOPHAGEAL REFLUX DISEASE
     Dosage: 40.0MG UNKNOWN
     Route: 065
     Dates: start: 20151118
  45. BUPROPION. [Concomitant]
     Active Substance: BUPROPION
     Indication: ANTIDEPRESSANT DRUG LEVEL
     Dates: end: 201412
  46. VITAMIN C [Concomitant]
     Active Substance: ASCORBIC ACID
     Indication: NUTRITIONAL SUPPLEMENTATION
     Dates: end: 201512
  47. HYDROCORTISONE. [Concomitant]
     Active Substance: HYDROCORTISONE
     Dates: start: 20100523
  48. AMOXICILLIN. [Concomitant]
     Active Substance: AMOXICILLIN
     Dates: start: 20100420
  49. TETRACYCLINE [Concomitant]
     Active Substance: TETRACYCLINE
     Dates: start: 20100927
  50. TERCONAZOLE. [Concomitant]
     Active Substance: TERCONAZOLE
     Dates: start: 20130826
  51. NITROFURANTOIN. [Concomitant]
     Active Substance: NITROFURANTOIN
     Dates: start: 20161123

REACTIONS (1)
  - Tubulointerstitial nephritis [Recovered/Resolved]
